FAERS Safety Report 8866563 (Version 1)
Quarter: 2012Q4

REPORT INFORMATION
  Report Type: 
  Country: US (occurrence: US)
  Receive Date: 20121025
  Receipt Date: 20121025
  Transmission Date: 20130627
  Serious: No
  Sender: FDA-Public Use
  Company Number: US-AMGEN-USASP2012012916

PATIENT
  Sex: Female

DRUGS (10)
  1. ENBREL [Suspect]
     Indication: PRODUCT USED FOR UNKNOWN INDICATION
     Dosage: 50 mg, qwk
     Route: 058
  2. COREG [Concomitant]
     Dosage: 25 mg, UNK
  3. NORVASC [Concomitant]
     Dosage: 2.5 mg, UNK
  4. METFORMIN [Concomitant]
     Dosage: 500 mg, UNK
  5. LISINOPRIL [Concomitant]
     Dosage: 2.5 mg, UNK
  6. OMEPRAZOLE [Concomitant]
     Dosage: 10 mg, UNK
  7. LEVEMIR [Concomitant]
     Dosage: UNK
  8. VICTOZA [Concomitant]
     Dosage: 18 mg, UNK
  9. NOVOLOG [Concomitant]
     Dosage: 100 ml, UNK
  10. LORTAB                             /00917501/ [Concomitant]
     Dosage: UNK

REACTIONS (3)
  - Nausea [Unknown]
  - Chills [Unknown]
  - Diarrhoea [Unknown]
